FAERS Safety Report 7722095-X (Version None)
Quarter: 2011Q3

REPORT INFORMATION
  Report Type: 
  Country: None (occurrence: None)
  Receive Date: 20110831
  Receipt Date: 20110822
  Transmission Date: 20111222
  Serious: Yes (Disabling)
  Sender: FDA-Public Use
  Company Number: BR-ASTRAZENECA-2011SE50490

PATIENT
  Age: 65 Year
  Sex: Male

DRUGS (1)
  1. NAROPIN [Suspect]
     Indication: NERVE BLOCK
     Route: 065
     Dates: start: 20110817, end: 20110817

REACTIONS (2)
  - DELAYED RECOVERY FROM ANAESTHESIA [None]
  - BLINDNESS [None]
